FAERS Safety Report 22944978 (Version 4)
Quarter: 2024Q2

REPORT INFORMATION
  Report Type: Spontaneous
  Country: US (occurrence: US)
  Receive Date: 20230914
  Receipt Date: 20240403
  Transmission Date: 20240715
  Serious: No
  Sender: FDA-Public Use
  Company Number: US-PFIZER INC-PV202300137786

PATIENT
  Age: 80 Year
  Sex: Male

DRUGS (6)
  1. IBRANCE [Suspect]
     Active Substance: PALBOCICLIB
     Indication: Breast cancer male
     Dosage: 125 MG
     Dates: start: 2023
  2. IBRANCE [Suspect]
     Active Substance: PALBOCICLIB
     Indication: Breast cancer metastatic
     Dosage: 75 MG, CYCLIC (DAILY FOR 14 DAYS, THEN 7 DAYS OF REST OUT OF 21 DAY CYCLE)
  3. IBRANCE [Suspect]
     Active Substance: PALBOCICLIB
     Dosage: UNK
     Dates: start: 20230317
  4. IBRANCE [Suspect]
     Active Substance: PALBOCICLIB
     Dosage: 75 MG TABLET ORAL DAILY FOR 21 DAYS
     Route: 048
     Dates: start: 20230622, end: 20231116
  5. IBRANCE [Suspect]
     Active Substance: PALBOCICLIB
     Dosage: TAKE 75MG(1 TABLET) DAILY FOR 14 DAYS THEN 7 DAYS OF REST OUT OF 21 DAY CYCLE
  6. FASLODEX [Concomitant]
     Active Substance: FULVESTRANT
     Dosage: UNK

REACTIONS (5)
  - Rash pruritic [Unknown]
  - Productive cough [Unknown]
  - Full blood count abnormal [Unknown]
  - Off label use [Unknown]
  - Product use issue [Unknown]

NARRATIVE: CASE EVENT DATE: 20230101
